FAERS Safety Report 7862353 (Version 2)
Quarter: 2020Q1

REPORT INFORMATION
  Report Type: Report from Study
  Country: JP (occurrence: JP)
  Receive Date: 20110318
  Receipt Date: 20200205
  Transmission Date: 20200409
  Serious: Yes (Death, Other)
  Sender: FDA-Public Use
  Company Number: JP-CELGENEUS-087-21880-11011211

PATIENT
  Age: 63 Year
  Sex: Male
  Weight: 49.7 kg

DRUGS (4)
  1. ONEALFA [Concomitant]
     Active Substance: ALFACALCIDOL
     Indication: PLASMA CELL MYELOMA
     Dosage: .5 MILLIGRAM
     Route: 048
     Dates: start: 20100324, end: 20101210
  2. DUROTEP [Concomitant]
     Active Substance: FENTANYL
     Indication: PLASMA CELL MYELOMA
     Dosage: 4.2 MILLIGRAM
     Route: 062
     Dates: start: 20100324, end: 20101210
  3. REVLIMID [Suspect]
     Active Substance: LENALIDOMIDE
     Indication: PLASMA CELL MYELOMA
     Dosage: 15 MILLIGRAM
     Route: 048
     Dates: start: 20101019, end: 20101022
  4. LENADEX [Suspect]
     Active Substance: DEXAMETHASONE ACETATE
     Indication: PLASMA CELL MYELOMA
     Dosage: 20 MILLIGRAM
     Route: 048
     Dates: start: 20101019, end: 20101019

REACTIONS (3)
  - Plasma cell myeloma [Fatal]
  - Platelet count decreased [Recovered/Resolved]
  - Haemoglobin decreased [Unknown]

NARRATIVE: CASE EVENT DATE: 20101029
